FAERS Safety Report 8895277 (Version 1)
Quarter: 2012Q4

REPORT INFORMATION
  Report Type: 
  Country: US (occurrence: US)
  Receive Date: 20121107
  Receipt Date: 20121107
  Transmission Date: 20130627
  Serious: No
  Sender: FDA-Public Use
  Company Number: US-B.I. PHARMACEUTICALS,INC./RIDGEFIELD-2012-BP-27244BP

PATIENT
  Sex: Male
  Weight: 93 kg

DRUGS (7)
  1. PRADAXA [Suspect]
     Indication: ATRIAL FIBRILLATION
     Dosage: 300 mg
     Route: 048
     Dates: start: 201210
  2. LIPITOR [Concomitant]
     Indication: BLOOD CHOLESTEROL INCREASED
     Dosage: 20 mg
     Route: 048
  3. ZOLOFT [Concomitant]
     Indication: DEPRESSION
     Dosage: 50 mg
     Route: 048
  4. ZIAC [Concomitant]
     Indication: HYPERTENSION
     Route: 048
  5. AMLODIPINE [Concomitant]
     Route: 048
     Dates: start: 2008
  6. KLONOPIN [Concomitant]
     Indication: STRESS
     Route: 048
  7. KLONOPIN [Concomitant]
     Indication: ANXIETY

REACTIONS (1)
  - Palpitations [Not Recovered/Not Resolved]
